FAERS Safety Report 4914727-6 (Version None)
Quarter: 2006Q1

REPORT INFORMATION
  Report Type: 
  Country: None (occurrence: None)
  Receive Date: 20060216
  Receipt Date: 20050919
  Transmission Date: 20060701
  Serious: Yes (Hospitalization, Other)
  Sender: FDA-Public Use
  Company Number: US-MERCK-0509USA02691

PATIENT
  Age: 51 Year
  Sex: Male
  Weight: 114 kg

DRUGS (4)
  1. VIOXX [Suspect]
     Indication: BACK PAIN
     Route: 048
     Dates: start: 19990101, end: 20040101
  2. TOPROL-XL [Concomitant]
     Route: 048
  3. PAXIL [Concomitant]
     Route: 065
  4. XANAX [Concomitant]
     Route: 065

REACTIONS (10)
  - ANGINA PECTORIS [None]
  - CARDIAC FAILURE [None]
  - CEREBROVASCULAR ACCIDENT [None]
  - DEPRESSION [None]
  - HEPATOCELLULAR DAMAGE [None]
  - MYOCARDIAL INFARCTION [None]
  - PEPTIC ULCER [None]
  - RENAL INJURY [None]
  - THROMBOSIS [None]
  - VEIN DISORDER [None]
